FAERS Safety Report 16053231 (Version 2)
Quarter: 2019Q2

REPORT INFORMATION
  Report Type: Report from Study
  Country: US (occurrence: US)
  Receive Date: 20190308
  Receipt Date: 20190410
  Transmission Date: 20190711
  Serious: No
  Sender: FDA-Public Use
  Company Number: PHEH2019US009930

PATIENT
  Sex: Male

DRUGS (1)
  1. ENTRESTO [Suspect]
     Active Substance: SACUBITRIL\VALSARTAN
     Indication: CARDIAC FAILURE
     Route: 048

REACTIONS (7)
  - Asthenia [Unknown]
  - Blood pressure increased [Unknown]
  - Depression [Unknown]
  - Nausea [Unknown]
  - Dizziness [Unknown]
  - Heart rate increased [Unknown]
  - Fatigue [Unknown]
